FAERS Safety Report 5045532-0 (Version None)
Quarter: 2006Q2

REPORT INFORMATION
  Report Type: 
  Country: None (occurrence: None)
  Receive Date: 20060601
  Receipt Date: 20060210
  Transmission Date: 20061013
  Serious: No
  Sender: FDA-Public Use
  Company Number: 2006-BP-01295BP

PATIENT
  Sex: Male

DRUGS (1)
  1. SPIRIVA [Suspect]
     Indication: DYSPNOEA
     Dosage: 18 MCG (18 MCG 1 IN 1 D) IH
     Route: 055
     Dates: start: 20060101

REACTIONS (3)
  - DRY THROAT [None]
  - HAEMOPTYSIS [None]
  - PHARYNGOLARYNGEAL PAIN [None]
